FAERS Safety Report 9188143 (Version 2)
Quarter: 2013Q2

REPORT INFORMATION
  Report Type: Report from Study
  Country: DE (occurrence: DE)
  Receive Date: 20130325
  Receipt Date: 20130619
  Transmission Date: 20140414
  Serious: Yes (Hospitalization)
  Sender: FDA-Public Use
  Company Number: DE-BAYER-2012-133237

PATIENT
  Age: 27 Year
  Sex: Female
  Weight: 55 kg

DRUGS (3)
  1. BETAFERON [Suspect]
     Indication: RELAPSING-REMITTING MULTIPLE SCLEROSIS
     Route: 058
  2. ORAL CONTRACEPTIVE NOS [Concomitant]
  3. METHYLPREDNISOLON [Concomitant]
     Dosage: 1000-2000 MG FOR 6 DAYS
     Route: 042

REACTIONS (7)
  - Drug-induced liver injury [Recovered/Resolved]
  - Hepatitis infectious mononucleosis [Recovered/Resolved]
  - Liver function test abnormal [Recovered/Resolved]
  - Ocular icterus [Recovered/Resolved]
  - Jaundice [Recovered/Resolved]
  - Chromaturia [Recovered/Resolved]
  - Decreased appetite [Recovered/Resolved]
